FAERS Safety Report 20809418 (Version 1)
Quarter: 2022Q2

REPORT INFORMATION
  Report Type: Spontaneous
  Country: US (occurrence: US)
  Receive Date: 20220510
  Receipt Date: 20220510
  Transmission Date: 20220721
  Serious: No
  Sender: FDA-Public Use
  Company Number: US-PFIZER INC-2019156712

PATIENT
  Age: 37 Year
  Sex: Female
  Weight: 64.99 kg

DRUGS (10)
  1. SOMAVERT [Suspect]
     Active Substance: PEGVISOMANT
     Indication: Acromegaly
     Dosage: 20 UG, DAILY
     Route: 058
     Dates: start: 201806
  2. SOMAVERT [Suspect]
     Active Substance: PEGVISOMANT
     Indication: Gigantism
     Dosage: 20 UG DAILY
     Dates: start: 201806
  3. SOMAVERT [Suspect]
     Active Substance: PEGVISOMANT
     Indication: Metastases to lung
  4. SOMAVERT [Suspect]
     Active Substance: PEGVISOMANT
     Indication: Cholangiocarcinoma
  5. SOMAVERT [Suspect]
     Active Substance: PEGVISOMANT
     Indication: Retroperitoneal cancer
  6. SOMAVERT [Suspect]
     Active Substance: PEGVISOMANT
     Indication: Malignant peritoneal neoplasm
  7. ZOLOFT [Concomitant]
     Active Substance: SERTRALINE HYDROCHLORIDE
     Dosage: 50 MG, UNK
  8. IBUPROFEN [Concomitant]
     Active Substance: IBUPROFEN
     Dosage: 200 MG, UNK
  9. TYLENOL [Concomitant]
     Active Substance: ACETAMINOPHEN
     Dosage: 325 MG, UNK
  10. GABAPENTIN [Concomitant]
     Active Substance: GABAPENTIN
     Dosage: 100 MG

REACTIONS (1)
  - Headache [Unknown]
